FAERS Safety Report 20098853 (Version 1)
Quarter: 2021Q4

REPORT INFORMATION
  Report Type: Spontaneous
  Country: BG (occurrence: BG)
  Receive Date: 20211122
  Receipt Date: 20211122
  Transmission Date: 20220303
  Serious: Yes (Death, Hospitalization, Other)
  Sender: FDA-Public Use
  Company Number: BG-ABBVIE-21K-022-4168075-00

PATIENT
  Age: 25 Year
  Sex: Male

DRUGS (3)
  1. VALPROATE SODIUM [Suspect]
     Active Substance: VALPROATE SODIUM
     Indication: Seizure
     Dosage: 3X500 MG
     Route: 065
  2. LAMICTAL [Concomitant]
     Active Substance: LAMOTRIGINE
     Indication: Product used for unknown indication
  3. OLANZAPINE [Concomitant]
     Active Substance: OLANZAPINE
     Indication: Product used for unknown indication

REACTIONS (31)
  - Encephalitis autoimmune [Fatal]
  - Venous angioma of brain [Unknown]
  - General physical health deterioration [Unknown]
  - Skin disorder [Unknown]
  - Pyrexia [Unknown]
  - Arrhythmia [Unknown]
  - Extrapyramidal disorder [Unknown]
  - Hyperkinesia [Unknown]
  - Organic brain syndrome [Unknown]
  - Speech disorder [Unknown]
  - Hallucinations, mixed [Unknown]
  - Paranoia [Unknown]
  - Klebsiella infection [Unknown]
  - IIIrd nerve paralysis [Unknown]
  - Muscle tone disorder [Unknown]
  - Catatonia [Unknown]
  - Hyperthermia [Unknown]
  - Heart rate increased [Unknown]
  - Leukocytosis [Unknown]
  - Blood sodium increased [Unknown]
  - Oxygen saturation decreased [Unknown]
  - Acid base balance abnormal [Unknown]
  - Transaminases abnormal [Unknown]
  - Waxy flexibility [Unknown]
  - Pyrexia [Unknown]
  - Dyskinesia [Unknown]
  - Insomnia [Unknown]
  - Aggression [Unknown]
  - Hypertension [Unknown]
  - Hypotension [Unknown]
  - Drug ineffective [Unknown]
